FAERS Safety Report 19212463 (Version 4)
Quarter: 2021Q2

REPORT INFORMATION
  Report Type: Spontaneous
  Country: US (occurrence: US)
  Receive Date: 20210504
  Receipt Date: 20210519
  Transmission Date: 20210717
  Serious: No
  Sender: FDA-Public Use
  Company Number: US-ORGANON-O2105USA000111

PATIENT
  Sex: Female
  Weight: 63.96 kg

DRUGS (1)
  1. NEXPLANON [Suspect]
     Active Substance: ETONOGESTREL
     Dosage: 1 ROD, LEFT UPPER ARM
     Route: 059
     Dates: start: 20181130, end: 20210429

REACTIONS (2)
  - Device kink [Recovered/Resolved]
  - Menometrorrhagia [Unknown]
